FAERS Safety Report 20422309 (Version 1)
Quarter: 2022Q1

REPORT INFORMATION
  Report Type: Spontaneous
  Country: US (occurrence: None)
  Receive Date: 20220203
  Receipt Date: 20220203
  Transmission Date: 20220424
  Serious: Yes (Other)
  Sender: FDA-Public Use
  Company Number: None

PATIENT
  Sex: Female

DRUGS (12)
  1. BENLYSTA [Suspect]
     Active Substance: BELIMUMAB
     Indication: Systemic lupus erythematosus
     Dosage: FREQUENCY : AS DIRECTED;?
     Route: 058
     Dates: start: 20200624
  2. BENLYSTA [Concomitant]
     Active Substance: BELIMUMAB
  3. BISOPRL/HCTZ TAB [Concomitant]
  4. BISOPRL/HCTZ TAB [Concomitant]
  5. DEXILANT CAP [Concomitant]
  6. DICLOFENAC [Concomitant]
     Active Substance: DICLOFENAC
  7. FOLIC ACID TAB [Concomitant]
  8. VITAMIN D [Concomitant]
     Active Substance: VITAMIN D NOS
  9. METHOTREXATE [Concomitant]
     Active Substance: METHOTREXATE
  10. OMEPRAZOLE TAB [Concomitant]
  11. TRAMADOL HCL TAB [Concomitant]
  12. VALACYCLOVIR TAB [Concomitant]

REACTIONS (1)
  - Neoplasm malignant [None]
